FAERS Safety Report 14643514 (Version 1)
Quarter: 2018Q1

REPORT INFORMATION
  Report Type: Spontaneous
  Country: GB (occurrence: GB)
  Receive Date: 20180315
  Receipt Date: 20180315
  Transmission Date: 20180509
  Serious: Yes (Other)
  Sender: FDA-Public Use
  Company Number: GB-TEVA-2018-GB-868567

PATIENT
  Age: 58 Year
  Sex: Female
  Weight: 58 kg

DRUGS (2)
  1. HYDROCORTISONE. [Concomitant]
     Active Substance: HYDROCORTISONE
     Dosage: 2 DOSAGE FORMS DAILY; APPLY.
  2. ACICLOVIR [Suspect]
     Active Substance: ACYCLOVIR
     Route: 065

REACTIONS (2)
  - Face oedema [Recovering/Resolving]
  - Rash erythematous [Recovering/Resolving]
